FAERS Safety Report 8156494-1 (Version None)
Quarter: 2012Q1

REPORT INFORMATION
  Report Type: 
  Country: None (occurrence: None)
  Receive Date: 20120222
  Receipt Date: 20120215
  Transmission Date: 20120608
  Serious: Yes (Death)
  Sender: FDA-Public Use
  Company Number: FR-SANOFI-AVENTIS-2012SA010002

PATIENT
  Age: 65 Year
  Sex: Male

DRUGS (13)
  1. AMLODIPINE BESYLATE [Suspect]
     Route: 048
     Dates: start: 20101201
  2. POTASSIUM CHLORIDE [Concomitant]
  3. TRAMADOL HCL [Concomitant]
  4. ACETAMINOPHEN [Concomitant]
     Indication: PAIN
  5. BUDESONIDE/FORMOTEROL [Suspect]
     Route: 055
     Dates: start: 20100901
  6. SUTENT /05510201/ [Suspect]
     Dosage: 50 MG, CYCLE, ONCE DAILY, ORAL
     Dates: start: 20101020, end: 20111213
  7. HYPERIUM [Suspect]
     Dates: start: 20100901
  8. HYZAAR [Suspect]
     Route: 048
     Dates: start: 20100901, end: 20110201
  9. LANSOPRAZOLE [Suspect]
     Route: 048
     Dates: start: 20100901
  10. LOVENOX [Suspect]
     Route: 058
     Dates: start: 20111107, end: 20111125
  11. LOSARTAN POTASSIUM AND HYDROCHLOROTHIAZIDE [Suspect]
     Dosage: 100MG/25 MG
     Route: 048
     Dates: start: 20110201
  12. SPASFON-LYOC [Concomitant]
     Indication: PAIN
  13. MOVIPREP [Concomitant]
     Indication: CONSTIPATION

REACTIONS (1)
  - AORTIC DISSECTION [None]
